FAERS Safety Report 4554044-X (Version None)
Quarter: 2005Q1

REPORT INFORMATION
  Report Type: 
  Country: None (occurrence: None)
  Receive Date: 20050113
  Receipt Date: 20050113
  Transmission Date: 20050727
  Serious: Yes (Death)
  Sender: FDA-Public Use
  Company Number: None

PATIENT
  Age: 27 Year
  Sex: Male
  Weight: 111.1313 kg

DRUGS (2)
  1. CELEBREX [Suspect]
     Indication: CHEST PAIN
     Dates: start: 20041008, end: 20041222
  2. BEXTRA [Suspect]
     Indication: CHEST PAIN
     Dates: start: 20041222, end: 20050105

REACTIONS (3)
  - COMA [None]
  - PULMONARY EMBOLISM [None]
  - VENOUS THROMBOSIS LIMB [None]
